FAERS Safety Report 9733079 (Version 2)
Quarter: 2014Q2

REPORT INFORMATION
  Report Type: Report from Study
  Country: IT (occurrence: IT)
  Receive Date: 20131204
  Receipt Date: 20140612
  Transmission Date: 20141212
  Serious: Yes (Other)
  Sender: FDA-Public Use
  Company Number: IT-UCBSA-104380

PATIENT
  Age: 41 Year
  Sex: Male
  Weight: 70 kg

DRUGS (9)
  1. LEVETIRACETAM [Suspect]
     Dosage: DAILY DOSE 500 MG
     Route: 048
     Dates: start: 20121016, end: 20121024
  2. LEVETIRACETAM [Suspect]
     Dosage: DAILY DOSE OF 1000 MG
     Route: 048
     Dates: start: 20121025, end: 20121103
  3. LEVETIRACETAM [Suspect]
     Dosage: DAILY DOSE OF 1500 MG
     Route: 048
     Dates: start: 20121104, end: 20121112
  4. LEVETIRACETAM [Suspect]
     Dosage: DAILY DOSE OF 2000 MG
     Route: 048
     Dates: start: 20121113, end: 20121121
  5. LEVETIRACETAM [Suspect]
     Dosage: DAILY DOSE OF 2500 MG
     Route: 048
     Dates: start: 20121122, end: 20121205
  6. CIPRALEX [Concomitant]
     Indication: DEPRESSION
     Dosage: 15 MG, ONCE DAILY (QD)
     Route: 048
     Dates: start: 20110110
  7. ABILIFY [Concomitant]
     Indication: SCHIZOAFFECTIVE DISORDER
     Dosage: 10 MG, ONCE DAILY (QD)
     Route: 048
     Dates: start: 20120302
  8. METFORMIN [Concomitant]
     Indication: DIABETES MELLITUS
     Dosage: 1500 MG, ONCE DAILY (QD)
     Route: 048
     Dates: start: 20110318
  9. CLONAZEPAM [Concomitant]
     Indication: PARTIAL SEIZURES WITH SECONDARY GENERALISATION
     Dosage: 2 MG, ONCE DAILY (QD)
     Route: 048
     Dates: start: 20120101

REACTIONS (1)
  - Persecutory delusion [Recovered/Resolved]
